FAERS Safety Report 6939200-5 (Version None)
Quarter: 2010Q3

REPORT INFORMATION
  Report Type: 
  Country: None (occurrence: None)
  Receive Date: 20100824
  Receipt Date: 20100812
  Transmission Date: 20110219
  Serious: Yes (Hospitalization)
  Sender: FDA-Public Use
  Company Number: JP-BRISTOL-MYERS SQUIBB COMPANY-15176928

PATIENT
  Age: 79 Year
  Sex: Female
  Weight: 40 kg

DRUGS (12)
  1. APIXABAN [Suspect]
     Indication: THROMBOSIS PROPHYLAXIS
     Dosage: INTERRUPTED ON 02JUL2010
     Route: 048
     Dates: start: 20081202
  2. WARFARIN SODIUM [Suspect]
     Indication: THROMBOSIS PROPHYLAXIS
     Dosage: INTERRUPTED ON 02JUL2010
     Route: 048
     Dates: start: 20081202
  3. PLACEBO [Suspect]
     Indication: THROMBOSIS PROPHYLAXIS
     Dosage: INTERRUPTED ON 02JUL2010
     Route: 048
     Dates: start: 20081202
  4. MOSAPRIDE CITRATE [Concomitant]
     Dates: start: 20060630
  5. ETIZOLAM [Concomitant]
     Dates: start: 20060630
  6. VITANEURIN [Concomitant]
     Dates: start: 20070816
  7. NIZATIDINE [Concomitant]
     Dates: start: 20080501
  8. TORSEMIDE [Concomitant]
     Dates: start: 20100325
  9. SENNOSIDE [Concomitant]
     Dates: start: 20100325
  10. KETOPROFEN [Concomitant]
     Dates: start: 20100325
  11. INDAPAMIDE [Concomitant]
     Dates: start: 20080615
  12. DEXAMETHASONE [Concomitant]

REACTIONS (1)
  - SPINAL COMPRESSION FRACTURE [None]
